FAERS Safety Report 25054561 (Version 5)
Quarter: 2025Q3

REPORT INFORMATION
  Report Type: Spontaneous
  Country: US (occurrence: US)
  Receive Date: 20250307
  Receipt Date: 20250825
  Transmission Date: 20251020
  Serious: No
  Sender: SANOFI AVENTIS
  Company Number: US-SA-2025SA067725

PATIENT
  Age: 28 Year
  Sex: Female
  Weight: 65.76 kg

DRUGS (24)
  1. DUPIXENT [Suspect]
     Active Substance: DUPILUMAB
     Indication: Dermatitis atopic
     Route: 058
     Dates: start: 20250217, end: 20250217
  2. DUPIXENT [Suspect]
     Active Substance: DUPILUMAB
     Dosage: 300 MG, QOW
     Route: 058
     Dates: start: 20250303, end: 2025
  3. BOTOX [Concomitant]
     Active Substance: ONABOTULINUMTOXINA
  4. CIMZIA [Concomitant]
     Active Substance: CERTOLIZUMAB PEGOL
  5. OTEZLA [Concomitant]
     Active Substance: APREMILAST
  6. PREGABALIN [Concomitant]
     Active Substance: PREGABALIN
  7. PREGABALIN [Concomitant]
     Active Substance: PREGABALIN
  8. TRAZODONE [Concomitant]
     Active Substance: TRAZODONE HYDROCHLORIDE
  9. ZOLPIDEM [Concomitant]
     Active Substance: ZOLPIDEM TARTRATE
  10. BUTALBITAL, ACETAMINOPHEN AND CAFFEINE WITH CODEINE PHOSPHATE [Concomitant]
     Active Substance: ACETAMINOPHEN\BUTALBITAL\CAFFEINE\CODEINE PHOSPHATE
  11. VITAMIN C [Concomitant]
     Active Substance: ASCORBIC ACID
  12. VITAMIN C [Concomitant]
     Active Substance: ASCORBIC ACID
  13. VITAMINS [Concomitant]
     Active Substance: VITAMINS
  14. VITAMINS [Concomitant]
     Active Substance: VITAMINS
  15. PREDNISONE [Concomitant]
     Active Substance: PREDNISONE
  16. PREDNISONE [Concomitant]
     Active Substance: PREDNISONE
  17. TACROLIMUS [Concomitant]
     Active Substance: TACROLIMUS
     Route: 061
  18. XANAX [Concomitant]
     Active Substance: ALPRAZOLAM
  19. XANAX [Concomitant]
     Active Substance: ALPRAZOLAM
  20. FOLIC ACID [Concomitant]
     Active Substance: FOLIC ACID
  21. FOLIC ACID [Concomitant]
     Active Substance: FOLIC ACID
  22. LISDEXAMFETAMINE DIMESYLATE [Concomitant]
     Active Substance: LISDEXAMFETAMINE DIMESYLATE
  23. Viviscal [Concomitant]
     Indication: Hair disorder
  24. ENBREL [Concomitant]
     Active Substance: ETANERCEPT

REACTIONS (9)
  - Sleep disorder [Not Recovered/Not Resolved]
  - Injection site discolouration [Unknown]
  - Insomnia [Unknown]
  - Sinusitis [Unknown]
  - Injection site pruritus [Unknown]
  - Injection site swelling [Unknown]
  - Injection site erythema [Unknown]
  - Injection site pain [Unknown]
  - Maternal exposure during pregnancy [Unknown]

NARRATIVE: CASE EVENT DATE: 20250101
